FAERS Safety Report 11434277 (Version 1)
Quarter: 2015Q3

REPORT INFORMATION
  Report Type: Spontaneous
  Country: US (occurrence: None)
  Receive Date: 20150828
  Receipt Date: 20150828
  Transmission Date: 20151125
  Serious: No
  Sender: FDA-Public Use
  Company Number: None

PATIENT
  Age: 98 Year
  Sex: Male
  Weight: 81.65 kg

DRUGS (2)
  1. ALEVE [Concomitant]
     Active Substance: NAPROXEN SODIUM
  2. AMLODIPINE [Suspect]
     Active Substance: AMLODIPINE BESYLATE
     Indication: BLOOD PRESSURE ABNORMAL
     Dosage: 1 PILL  ONCE DAILY TAKEN BY MOUTH
     Route: 048
     Dates: start: 20150609, end: 20150824

REACTIONS (6)
  - Tearfulness [None]
  - Visual impairment [None]
  - Malaise [None]
  - Photosensitivity reaction [None]
  - Skin warm [None]
  - Pruritus [None]

NARRATIVE: CASE EVENT DATE: 20150623
